FAERS Safety Report 6004427-6 (Version None)
Quarter: 2008Q4

REPORT INFORMATION
  Report Type: 
  Country: None (occurrence: None)
  Receive Date: 20081216
  Receipt Date: 20081205
  Transmission Date: 20090506
  Serious: Yes (Disabling)
  Sender: FDA-Public Use
  Company Number: US-MERCK-0206USA02803

PATIENT
  Sex: Female

DRUGS (1)
  1. FOSAMAX [Suspect]
     Route: 048
     Dates: start: 19980101, end: 20050101

REACTIONS (4)
  - BONE PAIN [None]
  - EXOSTOSIS [None]
  - JAW DISORDER [None]
  - OSTEONECROSIS [None]
